FAERS Safety Report 6370719-4 (Version None)
Quarter: 2009Q3

REPORT INFORMATION
  Report Type: 
  Country: None (occurrence: None)
  Receive Date: 20090923
  Receipt Date: 20070924
  Transmission Date: 20100115
  Serious: Yes (Hospitalization)
  Sender: FDA-Public Use
  Company Number: US-ASTRAZENECA-2006UW26408

PATIENT
  Age: 15644 Day
  Sex: Female
  Weight: 80.7 kg

DRUGS (6)
  1. SEROQUEL [Suspect]
     Indication: MENTAL DISORDER
     Dosage: 100MG-1000MG
     Route: 048
     Dates: start: 20060513, end: 20060905
  2. NPH INSULIN [Concomitant]
     Dosage: 14 UNITS
     Route: 058
  3. LAMICTAL [Concomitant]
     Route: 048
  4. GLUCOTROL [Concomitant]
     Route: 048
  5. FOLIC ACID [Concomitant]
     Route: 048
  6. LEVOFLOXACIN [Concomitant]
     Route: 048

REACTIONS (2)
  - DIABETES MELLITUS [None]
  - DIABETIC KETOACIDOSIS [None]
